FAERS Safety Report 5332758-1 (Version None)
Quarter: 2007Q2

REPORT INFORMATION
  Report Type: 
  Country: None (occurrence: None)
  Receive Date: 20070523
  Receipt Date: 20070511
  Transmission Date: 20071010
  Serious: Yes (Other)
  Sender: FDA-Public Use
  Company Number: NL-PFIZER INC-2007039367

PATIENT
  Sex: Female

DRUGS (3)
  1. LYRICA [Suspect]
     Indication: PAIN
     Route: 048
     Dates: start: 20070101, end: 20070101
  2. PARACETAMOL [Concomitant]
  3. IBUPROFEN [Concomitant]

REACTIONS (4)
  - FACIAL PARESIS [None]
  - INFLUENZA LIKE ILLNESS [None]
  - MONOPARESIS [None]
  - NAUSEA [None]
